FAERS Safety Report 16889179 (Version 1)
Quarter: 2019Q4

REPORT INFORMATION
  Report Type: Spontaneous
  Country: GB (occurrence: GB)
  Receive Date: 20191007
  Receipt Date: 20191007
  Transmission Date: 20200122
  Serious: Yes (Other)
  Sender: FDA-Public Use
  Company Number: GB-TEVA-2019-GB-1117609

PATIENT
  Age: 58 Year
  Sex: Female
  Weight: 63 kg

DRUGS (7)
  1. CLARITHROMYCIN. [Concomitant]
     Active Substance: CLARITHROMYCIN
     Dosage: 1 DF PER 12 HOURS
     Dates: start: 20190910
  2. CODEINE PHOSPHATE [Concomitant]
     Active Substance: CODEINE PHOSPHATE
     Dosage: 4 DF, 1 DAY
     Dates: start: 20190812, end: 20190909
  3. EVOREL [Concomitant]
     Dosage: APPLY; 2 DF PER 1 WEEK
     Dates: start: 20190909
  4. COSMOCOL [Concomitant]
     Dosage: TWICE A DAY; 1 DF
     Dates: start: 20190508
  5. LANSOPRAZOLE. [Concomitant]
     Active Substance: LANSOPRAZOLE
     Dosage: 1 DOSAGE FORM,1 DAY
     Dates: start: 20181107
  6. DICLOFENAC SODIUM. [Concomitant]
     Active Substance: DICLOFENAC SODIUM
     Dosage: 3 DF, 1 DAY
     Dates: start: 20181107
  7. DOXYCYCLINE. [Suspect]
     Active Substance: DOXYCYCLINE
     Dosage: 200 MG, 1 DAY
     Route: 065
     Dates: start: 20190909

REACTIONS (1)
  - Rash [Recovering/Resolving]

NARRATIVE: CASE EVENT DATE: 20190910
